FAERS Safety Report 25041782 (Version 1)
Quarter: 2025Q1

REPORT INFORMATION
  Report Type: Report from Study
  Country: CA (occurrence: CA)
  Receive Date: 20250305
  Receipt Date: 20250305
  Transmission Date: 20250408
  Serious: Yes (Other)
  Sender: SANDOZ
  Company Number: CA-002147023-NVSC2022CA285183

PATIENT
  Sex: Female

DRUGS (1)
  1. ERELZI [Suspect]
     Active Substance: ETANERCEPT-SZZS
     Indication: Rheumatoid arthritis
     Dosage: 50MG; WEEKLY
     Route: 058
     Dates: start: 20220418, end: 2024

REACTIONS (8)
  - Lung neoplasm malignant [Unknown]
  - Disease progression [Unknown]
  - Arthritis [Unknown]
  - Dysstasia [Unknown]
  - Osteoarthritis [Unknown]
  - Abscess [Unknown]
  - Fungal infection [Unknown]
  - Pain in extremity [Unknown]
